FAERS Safety Report 25585189 (Version 2)
Quarter: 2025Q4

REPORT INFORMATION
  Report Type: Spontaneous
  Country: US (occurrence: US)
  Receive Date: 20250721
  Receipt Date: 20251107
  Transmission Date: 20260118
  Serious: No
  Sender: SANOFI AVENTIS
  Company Number: US-SA-2025SA205634

PATIENT
  Age: 36 Year
  Sex: Male

DRUGS (1)
  1. DUPIXENT [Suspect]
     Active Substance: DUPILUMAB
     Indication: Eosinophilic oesophagitis
     Dosage: 300 MG, QW
     Route: 058
     Dates: start: 20250415

REACTIONS (5)
  - Dysphagia [Unknown]
  - Odynophagia [Recovered/Resolved]
  - Helicobacter infection [Unknown]
  - Nausea [Unknown]
  - Vertigo [Unknown]

NARRATIVE: CASE EVENT DATE: 20250101
